FAERS Safety Report 4542304-8 (Version None)
Quarter: 2004Q4

REPORT INFORMATION
  Report Type: 
  Country: None (occurrence: None)
  Receive Date: 20041227
  Receipt Date: 20041217
  Transmission Date: 20050328
  Serious: Yes (Hospitalization, Other)
  Sender: FDA-Public Use
  Company Number: KII-2004-0014324

PATIENT
  Age: 39 Year
  Sex: Female

DRUGS (9)
  1. OXYCONTIN [Suspect]
     Dosage: ORAL
     Route: 048
  2. MUSCLE RELAXANT [Suspect]
     Dosage: ORAL
     Route: 048
  3. CYCLOBENZAPRINE               (CYCLOBENZAPRINE) [Suspect]
     Dosage: ORAL
     Route: 048
  4. ACETAMINOPHEN AND HYDROCODONE BITARTRATE [Suspect]
     Dosage: ORAL
     Route: 048
  5. ACETAMINOPHEN AND OXYCODONE HCL [Suspect]
     Dosage: ORAL
     Route: 048
  6. BENZODIAZEPINES DERIVATIVES [Suspect]
     Dosage: ORAL
     Route: 048
  7. HYPNOTICS AND SEDATIVES [Suspect]
     Dosage: ORAL
     Route: 048
  8. INDOMETHACIN [Suspect]
     Dosage: ORAL
     Route: 048
  9. ASPIRIN [Suspect]
     Dosage: ORAL
     Route: 048

REACTIONS (28)
  - ACIDOSIS [None]
  - AFFECT LABILITY [None]
  - AGGRESSION [None]
  - ANION GAP INCREASED [None]
  - ANOXIC ENCEPHALOPATHY [None]
  - ASPIRATION [None]
  - AZOTAEMIA [None]
  - BLOOD ALBUMIN DECREASED [None]
  - BLOOD GLUCOSE INCREASED [None]
  - CARDIAC ARREST [None]
  - CONFUSIONAL STATE [None]
  - CRYING [None]
  - DIALYSIS [None]
  - DISORIENTATION [None]
  - HEART RATE INCREASED [None]
  - HYPERKALAEMIA [None]
  - HYPOPERFUSION [None]
  - HYPOTENSION [None]
  - ISCHAEMIC HEPATITIS [None]
  - MIOSIS [None]
  - MULTIPLE DRUG OVERDOSE [None]
  - NODAL ARRHYTHMIA [None]
  - PROTHROMBIN TIME PROLONGED [None]
  - PUPILLARY REFLEX IMPAIRED [None]
  - RENAL FAILURE ACUTE [None]
  - RHABDOMYOLYSIS [None]
  - SKIN DISCOLOURATION [None]
  - VOMITING [None]
